FAERS Safety Report 4435323-3 (Version None)
Quarter: 2004Q3

REPORT INFORMATION
  Report Type: 
  Country: None (occurrence: None)
  Receive Date: 20040827
  Receipt Date: 20040827
  Transmission Date: 20050211
  Serious: Yes (Hospitalization)
  Sender: FDA-Public Use
  Company Number: None

PATIENT
  Age: 73 Year
  Sex: Male
  Weight: 90 kg

DRUGS (13)
  1. GLIPIZIDE [Suspect]
     Indication: DIABETES MELLITUS NON-INSULIN-DEPENDENT
     Dates: start: 20040405, end: 20040526
  2. NPH INSULIN [Suspect]
     Indication: DIABETES MELLITUS NON-INSULIN-DEPENDENT
     Dosage: 10 UNITS Q PM SQ
     Route: 058
     Dates: start: 20040405, end: 20040526
  3. CLOPIDOGREL [Concomitant]
  4. DIGOXIN [Concomitant]
  5. FOSINOPRIL SODIUM [Concomitant]
  6. LASIX [Concomitant]
  7. METOPROLOL [Concomitant]
  8. NITROGLYCERIN SL [Concomitant]
  9. OMEPRAZOLE [Concomitant]
  10. ALDACTONE [Concomitant]
  11. SIMVASTATIN [Concomitant]
  12. KCL TAB [Concomitant]
  13. TABS [Concomitant]

REACTIONS (7)
  - ASTHENIA [None]
  - BLOOD GLUCOSE DECREASED [None]
  - BLOOD PRESSURE DIASTOLIC DECREASED [None]
  - DYSPNOEA [None]
  - LOSS OF CONSCIOUSNESS [None]
  - TREMOR [None]
  - WEIGHT INCREASED [None]
